FAERS Safety Report 9290414 (Version 1)
Quarter: 2013Q2

REPORT INFORMATION
  Report Type: Spontaneous
  Country: US (occurrence: US)
  Receive Date: 20130515
  Receipt Date: 20130515
  Transmission Date: 20140414
  Serious: No
  Sender: FDA-Public Use
  Company Number: US-PFIZER INC-2013146184

PATIENT
  Age: 69 Year
  Sex: Female
  Weight: 104.31 kg

DRUGS (4)
  1. TOVIAZ [Suspect]
     Indication: HYPERTONIC BLADDER
     Dosage: 8 MG, 1X/DAY
     Route: 048
  2. POTASSIUM [Concomitant]
     Dosage: 20 MEQ, UNK
  3. BYSTOLIC [Concomitant]
     Dosage: 10 MG, 1X/DAY
  4. HYDRALAZINE [Concomitant]
     Dosage: 20 MG, UNK

REACTIONS (3)
  - Body mass index increased [Unknown]
  - Constipation [Unknown]
  - Dry mouth [Unknown]
